APPROVED DRUG PRODUCT: AMITRIPTYLINE HYDROCHLORIDE
Active Ingredient: AMITRIPTYLINE HYDROCHLORIDE
Strength: 50MG
Dosage Form/Route: TABLET;ORAL
Application: A214548 | Product #003 | TE Code: AB
Applicant: UNICHEM LABORATORIES LTD
Approved: May 19, 2021 | RLD: No | RS: No | Type: RX